FAERS Safety Report 9519580 (Version 1)
Quarter: 2013Q3

REPORT INFORMATION
  Report Type: Spontaneous
  Country: US (occurrence: None)
  Receive Date: 20130911
  Receipt Date: 20130911
  Transmission Date: 20140515
  Serious: Yes (Life-Threatening, Hospitalization)
  Sender: FDA-Public Use
  Company Number: None

PATIENT
  Age: 57 Year
  Sex: Female

DRUGS (2)
  1. NITROFURANTOIN [Suspect]
     Indication: URINARY TRACT INFECTION
     Dosage: 1 CAPSULE QD ORAL
     Route: 048
     Dates: start: 20130101, end: 20130705
  2. NITROFURANTOIN [Suspect]
     Indication: PROPHYLAXIS
     Dosage: 1 CAPSULE QD ORAL
     Route: 048
     Dates: start: 20130101, end: 20130705

REACTIONS (6)
  - Confusional state [None]
  - Acute hepatic failure [None]
  - Hepatotoxicity [None]
  - Encephalopathy [None]
  - International normalised ratio increased [None]
  - Asterixis [None]
